FAERS Safety Report 6372130-9 (Version None)
Quarter: 2009Q3

REPORT INFORMATION
  Report Type: 
  Country: None (occurrence: None)
  Receive Date: 20090917
  Receipt Date: 20090902
  Transmission Date: 20100115
  Serious: Yes (Hospitalization)
  Sender: FDA-Public Use
  Company Number: 2009PV000067

PATIENT
  Age: 59 Year
  Sex: Female

DRUGS (19)
  1. DEPOCYT [Suspect]
     Indication: METASTASES TO MENINGES
     Dosage: 50 MG; X3; INTH
     Route: 037
     Dates: start: 20090720, end: 20090818
  2. METAMIZOLE (METAMIZOLE) [Suspect]
  3. CISPLATIN [Suspect]
  4. CISPLATIN [Concomitant]
  5. METAMIZOLE [Concomitant]
  6. LEVOTHYROXINE SODIUM [Concomitant]
  7. HYDROMORPHONE HYDROCHLORIDE [Concomitant]
  8. .. [Concomitant]
  9. DEXIBUPROFEN [Concomitant]
  10. PANTOPRAZOLE SODIUM [Concomitant]
  11. DEXAMETHASONE 4MG TAB [Concomitant]
  12. CYANOCOBALAMIN [Concomitant]
  13. THIAMINE HCL [Concomitant]
  14. POTASSIUM CHLORIDE [Concomitant]
  15. ARGININE ASPARTATE [Concomitant]
  16. ZOMETA [Concomitant]
  17. TRENTAL [Concomitant]
  18. CALCIUM CARBONATE [Concomitant]
  19. NEUPOGEN [Concomitant]

REACTIONS (2)
  - LEUKOPENIA [None]
  - NEUTROPENIA [None]
